FAERS Safety Report 9452388 (Version 1)
Quarter: 2013Q3

REPORT INFORMATION
  Report Type: Spontaneous
  Country: US (occurrence: US)
  Receive Date: 20130812
  Receipt Date: 20130812
  Transmission Date: 20140515
  Serious: Yes (Other)
  Sender: FDA-Public Use
  Company Number: US-GENZYME-POMP-1003180

PATIENT
  Sex: Male

DRUGS (1)
  1. LUMIZYME [Suspect]
     Indication: GLYCOGEN STORAGE DISEASE TYPE II
     Dosage: 2850 MG, Q2W
     Route: 042
     Dates: start: 20110630

REACTIONS (4)
  - Deafness [Unknown]
  - Skin disorder [Unknown]
  - Dry skin [Unknown]
  - Urticaria [Unknown]
